FAERS Safety Report 13941777 (Version 1)
Quarter: 2017Q3

REPORT INFORMATION
  Report Type: Spontaneous
  Country: US (occurrence: US)
  Receive Date: 20170906
  Receipt Date: 20170906
  Transmission Date: 20171127
  Serious: No
  Sender: FDA-Public Use
  Company Number: US-BAYER-2017-166204

PATIENT
  Age: 78 Year
  Sex: Female

DRUGS (4)
  1. CLARITIN [Suspect]
     Active Substance: LORATADINE
     Indication: HYPERSENSITIVITY
     Dosage: 1 DF, UNK
     Route: 048
     Dates: start: 20170829
  2. CLARITIN [Suspect]
     Active Substance: LORATADINE
     Indication: MULTIPLE ALLERGIES
  3. CLARITIN [Suspect]
     Active Substance: LORATADINE
     Indication: NASAL CONGESTION
  4. CLARITIN [Suspect]
     Active Substance: LORATADINE
     Indication: NASOPHARYNGITIS

REACTIONS (1)
  - Drug effect delayed [Unknown]

NARRATIVE: CASE EVENT DATE: 20170829
